FAERS Safety Report 11424626 (Version 1)
Quarter: 2015Q3

REPORT INFORMATION
  Report Type: Spontaneous
  Country: IT (occurrence: IT)
  Receive Date: 20150827
  Receipt Date: 20150827
  Transmission Date: 20151125
  Serious: Yes (Hospitalization)
  Sender: FDA-Public Use
  Company Number: IT-BAYER-2015-406351

PATIENT
  Age: 74 Year
  Sex: Female

DRUGS (2)
  1. ENTACT [Concomitant]
     Active Substance: ESCITALOPRAM OXALATE
     Route: 048
  2. CARDIOASPIRIN [Suspect]
     Active Substance: ASPIRIN
     Indication: THROMBOSIS PROPHYLAXIS
     Dosage: DAILY DOSE 100 MG
     Route: 048
     Dates: start: 20150101, end: 20150706

REACTIONS (4)
  - Subarachnoid haemorrhage [Unknown]
  - Subdural haematoma [Unknown]
  - Head injury [Unknown]
  - Brain contusion [Unknown]

NARRATIVE: CASE EVENT DATE: 20150706
